FAERS Safety Report 9015979 (Version 1)
Quarter: 2013Q1

REPORT INFORMATION
  Report Type: Spontaneous
  Country: US (occurrence: US)
  Receive Date: 20130116
  Receipt Date: 20130116
  Transmission Date: 20140127
  Serious: Yes (Other)
  Sender: FDA-Public Use
  Company Number: US-FRI-1000041583

PATIENT
  Sex: Male
  Weight: 95 kg

DRUGS (2)
  1. LEXAPRO [Suspect]
     Indication: DEPRESSION
     Dates: end: 201212
  2. CYMBALTA [Interacting]
     Indication: PAIN
     Dates: start: 201101, end: 201109

REACTIONS (10)
  - Drug interaction [Recovered/Resolved]
  - Loss of consciousness [Recovering/Resolving]
  - Skin burning sensation [Recovered/Resolved]
  - Contusion [Recovered/Resolved]
  - Oral fungal infection [Recovered/Resolved]
  - Urinary incontinence [Recovered/Resolved]
  - Fall [Recovered/Resolved]
  - Periorbital haematoma [Recovered/Resolved]
  - Syncope [Recovering/Resolving]
  - Cough [Recovering/Resolving]
